FAERS Safety Report 10133892 (Version 1)
Quarter: 2014Q2

REPORT INFORMATION
  Report Type: Report from Study
  Country: US (occurrence: US)
  Receive Date: 20140428
  Receipt Date: 20140428
  Transmission Date: 20141212
  Serious: Yes (Hospitalization, Other)
  Sender: FDA-Public Use
  Company Number: PHHY2014US048044

PATIENT
  Age: 80 Year
  Sex: Male
  Weight: 104.5 kg

DRUGS (21)
  1. BENAZEPRIL [Suspect]
     Indication: HYPERTENSION
     Dosage: 30 MG, QD
     Route: 048
     Dates: start: 20120224, end: 20120831
  2. BENAZEPRIL [Suspect]
     Dosage: 20 MG, DAILY
     Route: 048
     Dates: start: 20120906
  3. CARVEDILOL [Suspect]
     Indication: CARDIAC FAILURE CONGESTIVE
     Dosage: 25 MG, QD
     Route: 048
     Dates: start: 20120414, end: 20120831
  4. CARVEDILOL [Suspect]
     Dosage: 12.5 MG, BID
     Route: 048
     Dates: start: 20120906
  5. PLACEBO [Suspect]
     Indication: OSTEOARTHRITIS
     Dosage: UNK UKN, TID
     Dates: start: 20101201
  6. PLACEBO [Suspect]
     Indication: RHEUMATOID ARTHRITIS
  7. NEXIAM [Concomitant]
     Indication: PROPHYLAXIS
     Dosage: UNK UKN, UNK
     Dates: start: 20101201
  8. ALLOPURINOL [Concomitant]
     Indication: GOUT
     Dosage: UNK UKN, UNK
     Dates: start: 2009
  9. ALLOPURINOL [Concomitant]
     Dosage: 300 MG, DAILY
  10. POTASSIUM [Concomitant]
     Indication: MINERAL SUPPLEMENTATION
     Dosage: UNK UKN, UNK
     Dates: start: 20120414
  11. POTASSIUM [Concomitant]
     Dosage: 20 MEQ, DAILY
  12. ROPINIROL [Concomitant]
     Indication: RESTLESS LEGS SYNDROME
     Dosage: UNK UKN, UNK
     Dates: start: 2005
  13. ACETYLSALICYLIC ACID [Concomitant]
     Dosage: UNK UKN, UNK
     Dates: start: 2005
  14. ACETYLSALICYLIC ACID [Concomitant]
     Dosage: 81 MG, DAILY
  15. FUROSEMIDE [Concomitant]
     Indication: HYPERTENSION
     Dosage: UNK UKN, UNK
     Dates: start: 20120224
  16. FUROSEMIDE [Concomitant]
     Indication: OEDEMA
     Dosage: 40 MG, DAILY
  17. MAGNESIUM OXIDE [Concomitant]
     Indication: MINERAL SUPPLEMENTATION
     Dosage: UNK UKN, UNK
     Dates: start: 20120224
  18. METOLAZONE [Concomitant]
     Indication: HYPERTENSION
     Dates: start: 20120414
  19. METOLAZONE [Concomitant]
     Indication: OEDEMA
  20. PRILOSEC [Concomitant]
     Dosage: 20 MG, DAILY
  21. REQUIP [Concomitant]
     Dosage: 2 MG, TID

REACTIONS (9)
  - Hypotension [Recovered/Resolved]
  - Bradycardia [Unknown]
  - Urinary tract infection [Unknown]
  - Loss of consciousness [Unknown]
  - Malaise [Unknown]
  - Ejection fraction decreased [Unknown]
  - Blood glucose increased [Unknown]
  - Lymphocyte count decreased [Unknown]
  - Chest pain [Unknown]
